FAERS Safety Report 9084090 (Version 1)
Quarter: 2013Q1

REPORT INFORMATION
  Report Type: Report from Study
  Country: US (occurrence: US)
  Receive Date: 20130130
  Receipt Date: 20130130
  Transmission Date: 20140127
  Serious: No
  Sender: FDA-Public Use
  Company Number: US-ABBOTT-12P-163-0973576-00

PATIENT
  Age: 69 Year
  Sex: Male

DRUGS (6)
  1. HUMIRA 40 MG/0.8 ML PEN [Suspect]
     Indication: PSORIASIS
     Dates: start: 20120801, end: 20120801
  2. HUMIRA 40 MG/0.8 ML PEN [Suspect]
     Dates: start: 20120808, end: 20120808
  3. HUMIRA 40 MG/0.8 ML PEN [Suspect]
     Dates: start: 20120822, end: 20120822
  4. INSULIN [Concomitant]
     Indication: DIABETES MELLITUS
  5. UNKNOWN DIABETIC PILLS [Concomitant]
     Indication: DIABETES MELLITUS
  6. SUPPLEMENTS [Concomitant]
     Indication: PRODUCT USED FOR UNKNOWN INDICATION

REACTIONS (2)
  - Pharyngeal oedema [Not Recovered/Not Resolved]
  - Swollen tongue [Not Recovered/Not Resolved]
